FAERS Safety Report 9290194 (Version 1)
Quarter: 2013Q2

REPORT INFORMATION
  Report Type: Spontaneous
  Country: NO (occurrence: NO)
  Receive Date: 20130515
  Receipt Date: 20130515
  Transmission Date: 20140414
  Serious: Yes (Other)
  Sender: FDA-Public Use
  Company Number: NO-ELI_LILLY_AND_COMPANY-NO201305001662

PATIENT
  Age: 26 Year
  Sex: 0

DRUGS (3)
  1. ZYPREXA [Suspect]
     Indication: SCHIZOPHRENIA
     Dosage: 10 MG, UNKNOWN
  2. ABILIFY [Concomitant]
     Dosage: 1 DF, UNKNOWN
  3. ORFIRIL [Concomitant]
     Dosage: 1 DF, UNKNOWN

REACTIONS (2)
  - Gaze palsy [Not Recovered/Not Resolved]
  - Weight increased [Recovering/Resolving]
